FAERS Safety Report 23580212 (Version 3)
Quarter: 2024Q3

REPORT INFORMATION
  Report Type: Report from Study
  Country: JP (occurrence: JP)
  Receive Date: 20240229
  Receipt Date: 20240816
  Transmission Date: 20241017
  Serious: No
  Sender: UCB
  Company Number: JP-UCBSA-2024008138

PATIENT
  Age: 12 Year
  Sex: Male
  Weight: 35 kg

DRUGS (6)
  1. FINTEPLA [Suspect]
     Active Substance: FENFLURAMINE
     Indication: Severe myoclonic epilepsy of infancy
     Dosage: 0.1 MILLIGRAM/KILOGRAM
     Route: 048
     Dates: start: 20240126
  2. VALPROATE SODIUM [Concomitant]
     Active Substance: VALPROATE SODIUM
     Indication: Severe myoclonic epilepsy of infancy
     Dosage: 650 MILLIGRAM, ONCE DAILY (QD)
     Route: 048
  3. PHENOBARBITAL [Concomitant]
     Active Substance: PHENOBARBITAL
     Indication: Severe myoclonic epilepsy of infancy
     Dosage: 125 MILLIGRAM, ONCE DAILY (QD)
     Route: 048
  4. ZONISAMIDE [Concomitant]
     Active Substance: ZONISAMIDE
     Indication: Severe myoclonic epilepsy of infancy
     Dosage: 240 MILLIGRAM, ONCE DAILY (QD)
     Route: 048
  5. POTASSIUM BROMIDE [Concomitant]
     Active Substance: POTASSIUM BROMIDE
     Indication: Severe myoclonic epilepsy of infancy
     Dosage: 500 MILLIGRAM, ONCE DAILY (QD)
     Route: 048
  6. RIVOTRIL UNIMEDIC [Concomitant]
     Indication: Severe myoclonic epilepsy of infancy
     Dosage: 1 MILLIGRAM, ONCE DAILY (QD)
     Route: 048

REACTIONS (1)
  - Diarrhoea [Recovering/Resolving]

NARRATIVE: CASE EVENT DATE: 20240201
